FAERS Safety Report 6481596-5 (Version None)
Quarter: 2009Q4

REPORT INFORMATION
  Report Type: 
  Country: None (occurrence: None)
  Receive Date: 20091208
  Receipt Date: 20091203
  Transmission Date: 20100525
  Serious: Yes (Disabling)
  Sender: FDA-Public Use
  Company Number: AU-ROCHE-664020

PATIENT
  Sex: Female
  Weight: 60 kg

DRUGS (4)
  1. HERCEPTIN [Suspect]
     Indication: BREAST CANCER
     Dosage: FREQUENCY REPORTED AS 3/52
     Route: 042
     Dates: start: 20080718, end: 20090612
  2. FEC REGIMEN [Concomitant]
     Dates: end: 20080801
  3. DOCETAXEL [Concomitant]
     Dates: end: 20080801
  4. TAMOXIFEN CITRATE [Concomitant]

REACTIONS (2)
  - AGEUSIA [None]
  - ANOSMIA [None]
